FAERS Safety Report 13883315 (Version 3)
Quarter: 2018Q2

REPORT INFORMATION
  Report Type: Report from Study
  Country: None (occurrence: PR)
  Receive Date: 20170818
  Receipt Date: 20180628
  Transmission Date: 20180711
  Serious: Yes (Other)
  Sender: FDA-Public Use
  Company Number: PR-ABBVIE-17P-131-2071024-00

PATIENT
  Sex: Female

DRUGS (6)
  1. TRUVADA [Suspect]
     Active Substance: EMTRICITABINE\TENOFOVIR DISOPROXIL FUMARATE
     Indication: HIV INFECTION
     Dosage: FIRST TRIMESTER OF EXPOSURE 0 TO 22 GESTATIONAL WEEK
     Route: 048
     Dates: end: 20170528
  2. TRUVADA [Suspect]
     Active Substance: EMTRICITABINE\TENOFOVIR DISOPROXIL FUMARATE
     Indication: HIV INFECTION
  3. NORVIR [Suspect]
     Active Substance: RITONAVIR
     Indication: HIV INFECTION
     Dosage: FIRST TRIMESTER OF EXPOSURE 0 TO 22 GESTATIONAL WEEK
     Route: 048
     Dates: end: 20170528
  4. PREZISTA [Suspect]
     Active Substance: DARUNAVIR ETHANOLATE
     Indication: HIV INFECTION
     Dosage: FIRST TRIMESTER OF EXPOSURE 0 TO 22 GESTATIONAL WEEK
     Route: 048
     Dates: end: 20170528
  5. PREZISTA [Suspect]
     Active Substance: DARUNAVIR ETHANOLATE
     Indication: HEPATITIS C
  6. NORVIR [Suspect]
     Active Substance: RITONAVIR
     Indication: HEPATITIS C

REACTIONS (2)
  - Exposure during pregnancy [Unknown]
  - Stillbirth [Unknown]

NARRATIVE: CASE EVENT DATE: 20170529
